FAERS Safety Report 9680926 (Version 2)
Quarter: 2013Q4

REPORT INFORMATION
  Report Type: Report from Study
  Country: IT (occurrence: IT)
  Receive Date: 20131111
  Receipt Date: 20131118
  Transmission Date: 20140711
  Serious: Yes (Hospitalization)
  Sender: FDA-Public Use
  Company Number: IT-BAYER-2013-136577

PATIENT
  Age: 75 Year
  Sex: Male

DRUGS (12)
  1. ALPHARADIN [Suspect]
     Indication: PROSTATE CANCER METASTATIC
     Dosage: 50 KBQ, PRO KG
     Route: 042
     Dates: start: 20130927, end: 20130930
  2. ALPHARADIN [Suspect]
     Indication: PROSTATE CANCER METASTATIC
     Dosage: 50 KBQ, PRO KG
     Route: 042
     Dates: start: 20131028
  3. PARACETAMOL [Concomitant]
     Indication: PAIN
     Dosage: TOTAL DAILY DOSE 1000 MG
     Route: 048
     Dates: start: 20130816
  4. CALCITRIOL [Concomitant]
     Indication: RENAL FAILURE CHRONIC
     Dosage: TOTAL DAILY DOSE 0.25 MG
     Route: 048
     Dates: start: 20130930
  5. TAMSULOSIN [Concomitant]
     Indication: BENIGN PROSTATIC HYPERPLASIA
     Dosage: TOTAL DAILY DOSE 0.4 MG
     Route: 048
     Dates: start: 20130918
  6. DILATREND [Concomitant]
     Indication: HYPERTENSION
     Dosage: TOTAL DAILY DOSE U.K.
     Route: 048
  7. FUROSEMIDE [Concomitant]
     Indication: HYPERTENSION
     Dosage: TOTAL DAILY DOSE 25 MG
     Route: 048
  8. LANTUS [Concomitant]
     Indication: DIABETES MELLITUS
     Dosage: TOTAL DAILY DOSE 6 U
     Route: 058
     Dates: start: 20130926
  9. CARDIOASPIRIN [Concomitant]
     Indication: CORONARY ARTERY DISEASE
     Dosage: TOTAL DAILY DOSE 100 MG
     Route: 048
  10. RANOLAZINE [Concomitant]
     Indication: CORONARY ARTERY DISEASE
     Dosage: TOTAL DAILY DOSE 1000 MG
     Route: 048
  11. ROSUVASTATIN [Concomitant]
     Indication: DYSLIPIDAEMIA
     Dosage: TOTAL DAILY DOSE U.K.
     Route: 048
  12. ESOMEPRAZOLE [Concomitant]
     Indication: PROPHYLAXIS
     Dosage: TOTAL DAILY DOSE U.K.
     Route: 048

REACTIONS (1)
  - Urinary retention [Not Recovered/Not Resolved]
